FAERS Safety Report 6249833-X (Version None)
Quarter: 2009Q2

REPORT INFORMATION
  Report Type: 
  Country: None (occurrence: None)
  Receive Date: 20090629
  Receipt Date: 20090625
  Transmission Date: 20091009
  Serious: Yes (Death)
  Sender: FDA-Public Use
  Company Number: PHHY2009MX25832

PATIENT
  Age: 98 Year
  Sex: Male

DRUGS (1)
  1. DIOVAN [Suspect]
     Indication: HYPERTENSION
     Dosage: 1TABLET (80 MG) PER DAY
     Route: 048
     Dates: start: 20070901, end: 20090531

REACTIONS (1)
  - DEATH [None]
